FAERS Safety Report 23796725 (Version 2)
Quarter: 2024Q2

REPORT INFORMATION
  Report Type: Spontaneous
  Country: US (occurrence: US)
  Receive Date: 20240430
  Receipt Date: 20240515
  Transmission Date: 20240717
  Serious: No
  Sender: FDA-Public Use
  Company Number: US-APOTEX-2024AP004516

PATIENT
  Sex: Female

DRUGS (2)
  1. OLOPATADINE HYDROCHLORIDE [Suspect]
     Active Substance: OLOPATADINE HYDROCHLORIDE
     Indication: Sneezing
     Dosage: 2 DOSAGE FORM, QD (1 SPRAY EACH NOSTRIL)
     Route: 045
  2. OLOPATADINE HYDROCHLORIDE [Suspect]
     Active Substance: OLOPATADINE HYDROCHLORIDE
     Indication: Lacrimation increased

REACTIONS (4)
  - Taste disorder [Recovered/Resolved]
  - Parosmia [Recovered/Resolved]
  - Headache [Unknown]
  - Drug ineffective [Unknown]
